FAERS Safety Report 11694792 (Version 5)
Quarter: 2015Q4

REPORT INFORMATION
  Report Type: Spontaneous
  Country: JP (occurrence: JP)
  Receive Date: 20151103
  Receipt Date: 20151130
  Transmission Date: 20160304
  Serious: Yes (Other)
  Sender: FDA-Public Use
  Company Number: PHJP2015JP019166

PATIENT
  Age: 82 Year
  Sex: Male

DRUGS (7)
  1. PREDNISOLONE. [Concomitant]
     Active Substance: PREDNISOLONE
     Dosage: 15 MG, QD
     Route: 048
  2. NEORAL [Suspect]
     Active Substance: CYCLOSPORINE
     Indication: NEPHROTIC SYNDROME
     Dosage: 100 MG, QD
     Route: 048
  3. ATORVASTATIN [Interacting]
     Active Substance: ATORVASTATIN
     Indication: HYPERLIPIDAEMIA
     Dosage: 20 MG, QD
     Route: 048
  4. PREDNISOLONE. [Concomitant]
     Active Substance: PREDNISOLONE
     Indication: NEPHROTIC SYNDROME
     Dosage: 40 MG, QD
     Route: 048
  5. NEORAL [Interacting]
     Active Substance: CYCLOSPORINE
     Dosage: 85 MG, QD
     Route: 048
  6. PRAVASTATIN [Interacting]
     Active Substance: PRAVASTATIN\PRAVASTATIN SODIUM
     Indication: HYPERLIPIDAEMIA
     Dosage: 10 MG, QD
     Route: 048
  7. NEORAL [Interacting]
     Active Substance: CYCLOSPORINE
     Dosage: 50 MG, QD
     Route: 048

REACTIONS (7)
  - Drug interaction [Recovering/Resolving]
  - Renal disorder [Recovering/Resolving]
  - Blood creatine phosphokinase increased [Recovering/Resolving]
  - Immunosuppressant drug level decreased [Recovering/Resolving]
  - Drug eruption [Recovering/Resolving]
  - Anuria [Unknown]
  - Hepatic enzyme increased [Recovering/Resolving]
